FAERS Safety Report 21530955 (Version 1)
Quarter: 2022Q4

REPORT INFORMATION
  Report Type: Spontaneous
  Country: US (occurrence: US)
  Receive Date: 20221031
  Receipt Date: 20221031
  Transmission Date: 20230113
  Serious: No
  Sender: FDA-Public Use
  Company Number: US-SA-2022SA438728

PATIENT
  Sex: Male

DRUGS (1)
  1. DUPIXENT [Suspect]
     Active Substance: DUPILUMAB
     Dosage: 200 MG;FREQUENCY: OTHER
     Route: 058

REACTIONS (4)
  - Pharyngitis streptococcal [Unknown]
  - Diarrhoea [Unknown]
  - Rash [Unknown]
  - Device use issue [Unknown]
